FAERS Safety Report 22029670 (Version 2)
Quarter: 2024Q1

REPORT INFORMATION
  Report Type: Spontaneous
  Country: US (occurrence: US)
  Receive Date: 20230223
  Receipt Date: 20240109
  Transmission Date: 20240410
  Serious: Yes (Hospitalization)
  Sender: FDA-Public Use
  Company Number: US-BIOMARINQT-US-2023-148643

PATIENT

DRUGS (3)
  1. VOXZOGO [Suspect]
     Active Substance: VOSORITIDE
     Indication: Osteochondrodysplasia
     Dosage: 0.35 MILLILITER
     Route: 058
     Dates: start: 20221111
  2. VOXZOGO [Suspect]
     Active Substance: VOSORITIDE
     Dosage: 0.56 UNK, QD
     Route: 058
  3. MELATONIN [Concomitant]
     Active Substance: MELATONIN
     Indication: Product used for unknown indication

REACTIONS (1)
  - Hypoacusis [Unknown]
